FAERS Safety Report 9296132 (Version 1)
Quarter: 2013Q2

REPORT INFORMATION
  Report Type: Spontaneous
  Country: DE (occurrence: DE)
  Receive Date: 20130517
  Receipt Date: 20130517
  Transmission Date: 20140414
  Serious: Yes (Hospitalization, Other)
  Sender: FDA-Public Use
  Company Number: DE-B.I. PHARMACEUTICALS,INC./RIDGEFIELD-2013-DE-01287DE

PATIENT
  Age: 51 Year
  Sex: Female
  Weight: 73.5 kg

DRUGS (6)
  1. PRADAXA [Suspect]
     Indication: ATRIAL FIBRILLATION
     Dosage: 300 MG
     Dates: start: 20130212
  2. AMLODIPIN [Concomitant]
     Indication: HYPERTENSION
     Dosage: STRENGTH: 5MG
     Dates: start: 201211
  3. ALMETEC [Concomitant]
     Indication: HYPERTENSION
     Dosage: STRENGTH: 20MG
     Dates: start: 201111
  4. SIMVASTATIN [Concomitant]
     Indication: PERIPHERAL ARTERIAL OCCLUSIVE DISEASE
     Dosage: 20 MG
     Dates: start: 201301
  5. BELOC ZOK [Concomitant]
     Indication: HYPERTENSION
     Dosage: 50 MG
     Dates: start: 201201
  6. BELOC ZOK [Concomitant]
     Indication: ARRHYTHMIA

REACTIONS (2)
  - Post procedural haemorrhage [Recovered/Resolved]
  - Vulval cancer [Unknown]
